FAERS Safety Report 8240452-2 (Version None)
Quarter: 2012Q1

REPORT INFORMATION
  Report Type: 
  Country: None (occurrence: None)
  Receive Date: 20120328
  Receipt Date: 20120322
  Transmission Date: 20120608
  Serious: Yes (Hospitalization)
  Sender: FDA-Public Use
  Company Number: JP-NOVOPROD-347016

PATIENT
  Age: 72 Year
  Sex: Male
  Weight: 60 kg

DRUGS (7)
  1. AMARYL [Concomitant]
     Dosage: 1 MG, QD
     Route: 048
  2. OLMESARTAN MEDOXOMIL [Concomitant]
     Dosage: 20 MG, QD
     Route: 048
  3. VICTOZA [Suspect]
     Dosage: 0.6 MG, QD
     Route: 058
     Dates: start: 20120123, end: 20120222
  4. VICTOZA [Suspect]
     Indication: TYPE 2 DIABETES MELLITUS
     Dosage: 0.3 MG, QD
     Route: 058
     Dates: start: 20120110
  5. RINLAXER [Concomitant]
     Dosage: 375 MG, QD
     Route: 048
  6. OPALMON [Concomitant]
     Dosage: 15RG/ QD
     Route: 048
  7. NIFEDIPINE [Concomitant]

REACTIONS (1)
  - PLEURISY [None]
